FAERS Safety Report 24062390 (Version 1)
Quarter: 2024Q3

REPORT INFORMATION
  Report Type: Spontaneous
  Country: FI (occurrence: FI)
  Receive Date: 20240708
  Receipt Date: 20240708
  Transmission Date: 20241017
  Serious: Yes (Life-Threatening)
  Sender: MYLAN
  Company Number: None

PATIENT
  Age: 19 Year
  Sex: Female

DRUGS (1)
  1. CLOZAPINE [Suspect]
     Active Substance: CLOZAPINE
     Indication: Self-injurious ideation
     Dosage: 600 MILLIGRAM
     Route: 048
     Dates: start: 20240207, end: 20240326

REACTIONS (2)
  - Self-injurious ideation [Recovering/Resolving]
  - Drug ineffective [Recovering/Resolving]
